FAERS Safety Report 14955871 (Version 1)
Quarter: 2018Q2

REPORT INFORMATION
  Report Type: Spontaneous
  Country: AU (occurrence: AU)
  Receive Date: 20180531
  Receipt Date: 20180531
  Transmission Date: 20180711
  Serious: Yes (Other)
  Sender: FDA-Public Use
  Company Number: AU-ACCORD-067525

PATIENT
  Age: 56 Year
  Sex: Male

DRUGS (2)
  1. CLOZAPINE. [Suspect]
     Active Substance: CLOZAPINE
     Indication: SCHIZOPHRENIA
  2. PALIPERIDONE/PALIPERIDONE PALMITATE [Concomitant]
     Indication: SCHIZOPHRENIA

REACTIONS (3)
  - Constipation [Recovered/Resolved]
  - Mental impairment [Recovered/Resolved]
  - Gastrointestinal hypomotility [Recovered/Resolved]
